FAERS Safety Report 17749178 (Version 2)
Quarter: 2021Q2

REPORT INFORMATION
  Report Type: Spontaneous
  Country: US (occurrence: US)
  Receive Date: 20200506
  Receipt Date: 20210524
  Transmission Date: 20210716
  Serious: Yes (Death, Hospitalization, Other)
  Sender: FDA-Public Use
  Company Number: US-ASTRAZENECA-2020SE58835

PATIENT
  Age: 66 Year
  Sex: Female
  Weight: 99.7 kg

DRUGS (29)
  1. LASIX [Concomitant]
     Active Substance: FUROSEMIDE
     Indication: CARDIAC FAILURE CONGESTIVE
     Dates: start: 2012, end: 2014
  2. ACETAMINOPHEN. [Concomitant]
     Active Substance: ACETAMINOPHEN
     Indication: PAIN
     Dates: start: 1985, end: 2014
  3. PRILOSEC [Suspect]
     Active Substance: OMEPRAZOLE MAGNESIUM
     Indication: GASTROOESOPHAGEAL REFLUX DISEASE
     Route: 048
     Dates: start: 20091026
  4. HYDRALAZINE [Concomitant]
     Active Substance: HYDRALAZINE HYDROCHLORIDE
     Indication: CARDIAC FAILURE CONGESTIVE
     Dates: start: 2012, end: 2014
  5. LEVOTHYROXINE. [Concomitant]
     Active Substance: LEVOTHYROXINE
     Indication: HYPOTHYROIDISM
     Dates: start: 2012, end: 2014
  6. ATENOLOL. [Concomitant]
     Active Substance: ATENOLOL
  7. ASPIRIN. [Concomitant]
     Active Substance: ASPIRIN
  8. CLARITIN [Concomitant]
     Active Substance: LORATADINE
     Indication: MULTIPLE ALLERGIES
     Dates: start: 1985, end: 2014
  9. SPIRONOLACTONE. [Concomitant]
     Active Substance: SPIRONOLACTONE
  10. FUROSEMIDE. [Concomitant]
     Active Substance: FUROSEMIDE
  11. PRILOSEC OTC [Suspect]
     Active Substance: OMEPRAZOLE MAGNESIUM
     Indication: GASTROOESOPHAGEAL REFLUX DISEASE
     Route: 048
     Dates: start: 2009, end: 2014
  12. AMLODIPINE [Concomitant]
     Active Substance: AMLODIPINE BESYLATE
     Indication: CARDIAC FAILURE CONGESTIVE
     Dates: start: 2012, end: 2014
  13. FOLIC ACID. [Concomitant]
     Active Substance: FOLIC ACID
  14. PRILOSEC [Suspect]
     Active Substance: OMEPRAZOLE MAGNESIUM
     Indication: GASTROOESOPHAGEAL REFLUX DISEASE
     Route: 048
     Dates: start: 2004, end: 2014
  15. PRILOSEC OTC [Suspect]
     Active Substance: OMEPRAZOLE MAGNESIUM
     Indication: GASTROOESOPHAGEAL REFLUX DISEASE
     Route: 048
  16. FLUOXETINE [Concomitant]
     Active Substance: FLUOXETINE HYDROCHLORIDE
     Indication: DEPRESSION
     Dates: start: 1990, end: 2014
  17. PREDNISONE. [Concomitant]
     Active Substance: PREDNISONE
     Indication: RHEUMATOID FACTOR
     Dates: start: 2014
  18. ISOSORBIDE. [Concomitant]
     Active Substance: ISOSORBIDE
     Indication: CARDIAC FAILURE CONGESTIVE
     Dates: start: 2012, end: 2014
  19. METOPROLOL. [Concomitant]
     Active Substance: METOPROLOL
     Indication: CARDIAC FAILURE CONGESTIVE
     Dates: start: 2012, end: 2014
  20. POTASSIUM CHLORIDE. [Concomitant]
     Active Substance: POTASSIUM CHLORIDE
  21. PRILOSEC OTC [Suspect]
     Active Substance: OMEPRAZOLE MAGNESIUM
     Indication: GASTROOESOPHAGEAL REFLUX DISEASE
     Route: 048
     Dates: start: 200901, end: 201408
  22. METHOTREXATE. [Concomitant]
     Active Substance: METHOTREXATE
     Indication: RHEUMATOID ARTHRITIS
     Dates: start: 1985, end: 2014
  23. IBUPROFEN. [Concomitant]
     Active Substance: IBUPROFEN
     Indication: RHEUMATOID ARTHRITIS
     Dates: start: 1985, end: 2014
  24. SIMVASTATIN. [Concomitant]
     Active Substance: SIMVASTATIN
  25. LOSARTAN. [Concomitant]
     Active Substance: LOSARTAN
  26. LISINOPRIL. [Concomitant]
     Active Substance: LISINOPRIL
  27. PRILOSEC [Suspect]
     Active Substance: OMEPRAZOLE MAGNESIUM
     Indication: GASTROOESOPHAGEAL REFLUX DISEASE
     Route: 048
     Dates: start: 200901, end: 201408
  28. CALCIUM [Concomitant]
     Active Substance: CALCIUM
     Indication: RHEUMATOID FACTOR
     Dates: start: 2014
  29. SENNA [Concomitant]
     Active Substance: SENNA LEAF\SENNOSIDES\SENNOSIDES A AND B
     Indication: CONSTIPATION
     Dates: start: 2014

REACTIONS (5)
  - Chronic kidney disease [Unknown]
  - Disseminated intravascular coagulation [Fatal]
  - Renal tubular necrosis [Unknown]
  - Acute kidney injury [Fatal]
  - End stage renal disease [Unknown]

NARRATIVE: CASE EVENT DATE: 2014
